FAERS Safety Report 12178979 (Version 2)
Quarter: 2016Q2

REPORT INFORMATION
  Report Type: Report from Study
  Country: DE (occurrence: DE)
  Receive Date: 20160315
  Receipt Date: 20160405
  Transmission Date: 20160815
  Serious: Yes (Congenital Anomaly)
  Sender: FDA-Public Use
  Company Number: PHHY2016DE031326

PATIENT

DRUGS (4)
  1. GILENYA [Suspect]
     Active Substance: FINGOLIMOD HYDROCHLORIDE
     Indication: FOETAL EXPOSURE DURING PREGNANCY
     Dosage: MATERNAL DOSE: 0.5 MG, ONCE DAILY
     Route: 064
     Dates: start: 20110408, end: 20150909
  2. CITALOPRAM [Concomitant]
     Active Substance: CITALOPRAM HYDROBROMIDE
     Indication: FOETAL EXPOSURE DURING PREGNANCY
     Dosage: MATERNAL DOSE: 10 MG QD
     Route: 064
     Dates: start: 20090406
  3. LYRICA [Concomitant]
     Active Substance: PREGABALIN
     Indication: FOETAL EXPOSURE DURING PREGNANCY
     Dosage: MATERNAL DOSE: 150 MG BID
     Route: 064
     Dates: start: 20080904, end: 20150122
  4. LYRICA [Concomitant]
     Active Substance: PREGABALIN
     Dosage: MATERNAL DOSE: 75 MG, BID
     Route: 064
     Dates: start: 20150122, end: 20151120

REACTIONS (2)
  - Trisomy 21 [Unknown]
  - Foetal exposure during pregnancy [Unknown]

NARRATIVE: CASE EVENT DATE: 201601
